FAERS Safety Report 17035603 (Version 1)
Quarter: 2019Q4

REPORT INFORMATION
  Report Type: Spontaneous
  Country: DE (occurrence: DE)
  Receive Date: 20191115
  Receipt Date: 20191115
  Transmission Date: 20200122
  Serious: Yes (Other)
  Sender: FDA-Public Use
  Company Number: DE-TEVA-2019-DE-1133958

PATIENT
  Sex: Female

DRUGS (1)
  1. IBUPROFEN ABZ 200 MG FILMTABLETTEN [Suspect]
     Active Substance: IBUPROFEN
     Indication: PAIN
     Dosage: 400 MILLIGRAM DAILY; 2 TABLETS TAKEN IN TOTAL
     Route: 048
     Dates: start: 2019, end: 2019

REACTIONS (2)
  - Deafness [Not Recovered/Not Resolved]
  - Impaired quality of life [Not Recovered/Not Resolved]

NARRATIVE: CASE EVENT DATE: 2019
